FAERS Safety Report 8005987-6 (Version None)
Quarter: 2011Q4

REPORT INFORMATION
  Report Type: 
  Country: None (occurrence: None)
  Receive Date: 20111226
  Receipt Date: 20111218
  Transmission Date: 20120403
  Serious: Yes (Other)
  Sender: FDA-Public Use
  Company Number: JP-BRISTOL-MYERS SQUIBB COMPANY-16137531

PATIENT
  Age: 64 Year
  Sex: Female

DRUGS (3)
  1. ETODOLAC [Concomitant]
     Indication: RHEUMATOID ARTHRITIS
  2. METHOTREXATE [Suspect]
     Dates: start: 20110509
  3. ORENCIA [Suspect]
     Indication: RHEUMATOID ARTHRITIS
     Route: 041
     Dates: start: 20110114, end: 20110829

REACTIONS (4)
  - HEPATIC FUNCTION ABNORMAL [None]
  - ALANINE AMINOTRANSFERASE INCREASED [None]
  - CHOLELITHIASIS [None]
  - ASPARTATE AMINOTRANSFERASE INCREASED [None]
